FAERS Safety Report 15758201 (Version 1)
Quarter: 2018Q4

REPORT INFORMATION
  Report Type: Other
  Country: DE (occurrence: DE)
  Receive Date: 20181225
  Receipt Date: 20181225
  Transmission Date: 20190205
  Serious: Yes (Hospitalization, Other)
  Sender: FDA-Public Use
  Company Number: DE-CELLTRION INC.-2018DE024727

PATIENT

DRUGS (11)
  1. ABATACEPT [Suspect]
     Active Substance: ABATACEPT
     Indication: RHEUMATOID ARTHRITIS
     Dosage: 500 MG Q4WKS
     Route: 042
     Dates: start: 20171120
  2. APIDRA [Concomitant]
     Active Substance: INSULIN GLULISINE
     Dosage: 100 IU
  3. PANTOPRAZOLE [Concomitant]
     Active Substance: PANTOPRAZOLE
  4. CARVEDILOL. [Concomitant]
     Active Substance: CARVEDILOL
  5. SIMVASTATIN. [Concomitant]
     Active Substance: SIMVASTATIN
  6. DECORTIN [Concomitant]
     Active Substance: PREDNISONE
  7. FENTANYL. [Concomitant]
     Active Substance: FENTANYL
  8. SAB SIMPLEX                        /00159501/ [Concomitant]
  9. TRUXIMA [Suspect]
     Active Substance: RITUXIMAB-ABBS
     Indication: RHEUMATOID ARTHRITIS
     Dosage: 1000 MG
     Route: 065
     Dates: start: 20180123, end: 20180123
  10. METHOTREXATE. [Suspect]
     Active Substance: METHOTREXATE
     Indication: RHEUMATOID ARTHRITIS
     Dosage: 2.5 MG/WEEK
     Route: 065
     Dates: start: 201801
  11. NOVAMINSULFON [Concomitant]
     Active Substance: METAMIZOLE

REACTIONS (9)
  - Plasma cell myeloma [Unknown]
  - Contraindicated product administered [Unknown]
  - Bronchitis [Unknown]
  - Haemorrhagic erosive gastritis [Recovered/Resolved]
  - Monoclonal gammopathy [Unknown]
  - Rheumatoid arthritis [Recovered/Resolved]
  - Tonsillitis [Unknown]
  - Thyroid cyst [Unknown]
  - Polyneuropathy [Unknown]

NARRATIVE: CASE EVENT DATE: 20170215
